FAERS Safety Report 13916639 (Version 1)
Quarter: 2017Q3

REPORT INFORMATION
  Report Type: Other
  Country: IT (occurrence: IT)
  Receive Date: 20170829
  Receipt Date: 20170829
  Transmission Date: 20171127
  Serious: Yes (Other)
  Sender: FDA-Public Use
  Company Number: IT-GE HEALTHCARE LIFE SCIENCES-2017CSU002660

PATIENT

DRUGS (1)
  1. OMNIPAQUE [Suspect]
     Active Substance: IOHEXOL
     Indication: PRODUCT USED FOR UNKNOWN INDICATION
     Dosage: 120 ML, SINGLE
     Route: 042
     Dates: start: 20170817, end: 20170817

REACTIONS (4)
  - Erythema [Not Recovered/Not Resolved]
  - Laryngeal oedema [Unknown]
  - Panic attack [Unknown]
  - Tachypnoea [Unknown]

NARRATIVE: CASE EVENT DATE: 20170817
